FAERS Safety Report 9716324 (Version 1)
Quarter: 2013Q4

REPORT INFORMATION
  Report Type: Spontaneous
  Country: US (occurrence: US)
  Receive Date: 20131127
  Receipt Date: 20131127
  Transmission Date: 20140711
  Serious: No
  Sender: FDA-Public Use
  Company Number: US-ENDO PHARMACEUTICALS INC.-HCDA20110034

PATIENT
  Age: 89 Year
  Sex: Male

DRUGS (2)
  1. HYDROCODONE/ACETAMINOPHEN 5MG/500MG [Suspect]
     Indication: PAIN
     Dosage: 10/1000 MG
     Route: 048
     Dates: start: 2006, end: 2009
  2. HYDROCODONE/ACETAMINOPHEN 5MG/500MG [Suspect]
     Dosage: 30/1500 MG
     Route: 048
     Dates: start: 2009

REACTIONS (2)
  - Diarrhoea [Not Recovered/Not Resolved]
  - Faeces hard [Recovered/Resolved]
